FAERS Safety Report 7303343-7 (Version None)
Quarter: 2011Q1

REPORT INFORMATION
  Report Type: 
  Country: None (occurrence: None)
  Receive Date: 20110221
  Receipt Date: 20110209
  Transmission Date: 20110831
  Serious: Yes (Hospitalization, Other)
  Sender: FDA-Public Use
  Company Number: US-ELI_LILLY_AND_COMPANY-US201102002363

PATIENT
  Sex: Male
  Weight: 92.971 kg

DRUGS (8)
  1. THORAZINE [Concomitant]
     Indication: AGITATION
     Dosage: 100 MG, AS NEEDED
     Route: 030
  2. ZYPREXA ZYDIS [Suspect]
     Indication: AGITATION
     Dosage: 10 MG, UNK
     Route: 048
     Dates: start: 20030106
  3. ATIVAN [Concomitant]
     Indication: AGITATION
     Dosage: 1 MG, AS NEEDED
     Route: 048
  4. ATIVAN [Concomitant]
     Dosage: 1 MG, AS NEEDED
     Route: 030
  5. THORAZINE [Concomitant]
     Dosage: 100 MG, AS NEEDED
     Route: 048
  6. DEPAKOTE [Concomitant]
  7. RISPERIDONE [Concomitant]
  8. ZYPREXA [Suspect]
     Indication: PSYCHOTIC DISORDER
     Dosage: 10 MG, UNK
     Route: 048
     Dates: start: 20030106

REACTIONS (8)
  - DIABETES MELLITUS [None]
  - CONVULSION [None]
  - BIPOLAR DISORDER [None]
  - NEUTROPHIL COUNT INCREASED [None]
  - DRUG INTERACTION [None]
  - NIGHTMARE [None]
  - OVERDOSE [None]
  - LYMPHOCYTE COUNT DECREASED [None]
